FAERS Safety Report 14322030 (Version 2)
Quarter: 2020Q2

REPORT INFORMATION
  Report Type: Spontaneous
  Country: US (occurrence: US)
  Receive Date: 20171225
  Receipt Date: 20200401
  Transmission Date: 20200713
  Serious: Yes (Death, Hospitalization)
  Sender: FDA-Public Use
  Company Number: US-UCBSA-2017051620

PATIENT
  Age: 44 Year
  Sex: Male

DRUGS (3)
  1. LISDEXAMFETAMINE [Suspect]
     Active Substance: LISDEXAMFETAMINE
     Indication: PRODUCT USED FOR UNKNOWN INDICATION
     Dosage: UNK
  2. HYDROCODONE [Suspect]
     Active Substance: HYDROCODONE
     Indication: PRODUCT USED FOR UNKNOWN INDICATION
     Dosage: UNK
  3. METHYLPHENIDATE HYDROCHLORIDE. [Suspect]
     Active Substance: METHYLPHENIDATE HYDROCHLORIDE
     Indication: PRODUCT USED FOR UNKNOWN INDICATION
     Dosage: UNK

REACTIONS (1)
  - Completed suicide [Fatal]
